FAERS Safety Report 24647771 (Version 3)
Quarter: 2025Q1

REPORT INFORMATION
  Report Type: Spontaneous
  Country: DE (occurrence: DE)
  Receive Date: 20241121
  Receipt Date: 20250219
  Transmission Date: 20250409
  Serious: Yes (Hospitalization, Other)
  Sender: UCB
  Company Number: DE-UCBSA-2024059549

PATIENT
  Age: 35 Year
  Sex: Male

DRUGS (15)
  1. LEVETIRACETAM [Suspect]
     Active Substance: LEVETIRACETAM
     Indication: Seizure
     Dosage: 250 MILLIGRAM, 2X/DAY (BID)
     Route: 065
     Dates: start: 202403
  2. FENFLURAMINE HYDROCHLORIDE [Interacting]
     Active Substance: FENFLURAMINE HYDROCHLORIDE
     Indication: Seizure
     Dosage: 5.9 MILLIGRAM, 2X/DAY (BID)
     Dates: start: 202402
  3. FENFLURAMINE HYDROCHLORIDE [Interacting]
     Active Substance: FENFLURAMINE HYDROCHLORIDE
     Dosage: 6 MILLILITER, 2X/DAY (BID)
     Dates: start: 202403, end: 2024
  4. FENFLURAMINE HYDROCHLORIDE [Interacting]
     Active Substance: FENFLURAMINE HYDROCHLORIDE
     Dosage: 0.5 ML IN MORNING, 1 ML IN EVENING
     Dates: start: 202404
  5. FENFLURAMINE HYDROCHLORIDE [Interacting]
     Active Substance: FENFLURAMINE HYDROCHLORIDE
     Dosage: 1 MILLILITER, 2X/DAY (BID)
  6. FENFLURAMINE HYDROCHLORIDE [Interacting]
     Active Substance: FENFLURAMINE HYDROCHLORIDE
     Dosage: 1 ML IN MORNING, 1.5 ML IN EVENING
     Dates: start: 202407
  7. FENFLURAMINE HYDROCHLORIDE [Interacting]
     Active Substance: FENFLURAMINE HYDROCHLORIDE
     Dosage: 2 ML IN MORNING, 1.8 ML IN EVENING
     Dates: start: 2024
  8. FENFLURAMINE HYDROCHLORIDE [Interacting]
     Active Substance: FENFLURAMINE HYDROCHLORIDE
  9. FENFLURAMINE HYDROCHLORIDE [Interacting]
     Active Substance: FENFLURAMINE HYDROCHLORIDE
  10. POTASSIUM BROMIDE [Suspect]
     Active Substance: POTASSIUM BROMIDE
     Indication: Seizure
  11. POTASSIUM BROMIDE [Suspect]
     Active Substance: POTASSIUM BROMIDE
     Dosage: 850 MILLIGRAM, 1-1-1 AND HALF
     Dates: start: 202403
  12. POTASSIUM BROMIDE [Suspect]
     Active Substance: POTASSIUM BROMIDE
     Dates: start: 202404
  13. POTASSIUM BROMIDE [Suspect]
     Active Substance: POTASSIUM BROMIDE
     Dosage: 850 MILLIGRAM, 1-1-1 AND HALF
     Dates: start: 2024
  14. POTASSIUM BROMIDE [Suspect]
     Active Substance: POTASSIUM BROMIDE
  15. VALPROIC ACID [Suspect]
     Active Substance: VALPROIC ACID
     Indication: Seizure
     Dosage: 500 MILLIGRAM, 2X/DAY (BID)
     Dates: start: 202403

REACTIONS (13)
  - Generalised tonic-clonic seizure [Unknown]
  - Encephalopathy [Unknown]
  - Drug level increased [Unknown]
  - Somnolence [Recovering/Resolving]
  - Ataxia [Unknown]
  - Psychomotor skills impaired [Unknown]
  - Acne [Unknown]
  - Asthenia [Unknown]
  - Anxiety [Unknown]
  - Skin disorder [Unknown]
  - Toxicity to various agents [Unknown]
  - Drug interaction [Unknown]
  - Wrong technique in product usage process [Unknown]

NARRATIVE: CASE EVENT DATE: 20240101
